FAERS Safety Report 9321537 (Version 1)
Quarter: 2013Q2

REPORT INFORMATION
  Report Type: Report from Study
  Country: AR (occurrence: AR)
  Receive Date: 20130531
  Receipt Date: 20130531
  Transmission Date: 20140414
  Serious: Yes (Death)
  Sender: FDA-Public Use
  Company Number: PHHY2013AR054816

PATIENT
  Sex: Female

DRUGS (1)
  1. EXFORGE [Suspect]
     Indication: BLOOD PRESSURE ABNORMAL
     Dosage: (320 MG VALS AND 5 MG AMLO)
     Route: 048

REACTIONS (1)
  - Neoplasm malignant [Fatal]
